FAERS Safety Report 7453519 (Version 2)
Quarter: 2014Q1

REPORT INFORMATION
  Report Type: Spontaneous
  Country: US (occurrence: US)
  Receive Date: 20100706
  Receipt Date: 20140124
  Transmission Date: 20141002
  Serious: Yes (Hospitalization)
  Sender: FDA-Public Use
  Company Number: US-JNJFOC-20100700114

PATIENT
  Age: 58 Year
  Sex: Female
  Weight: 74.84 kg

DRUGS (4)
  1. DURAGESIC [Suspect]
     Indication: PAIN
     Route: 062
     Dates: start: 2001, end: 2009
  2. DURAGESIC [Suspect]
     Indication: PAIN
     Route: 062
     Dates: start: 2009
  3. OXYCONTIN [Concomitant]
     Indication: BREAKTHROUGH PAIN
     Route: 065
  4. OXYCODONE [Concomitant]
     Indication: BREAKTHROUGH PAIN
     Route: 065

REACTIONS (9)
  - Thyroid cancer [Recovered/Resolved]
  - Cystitis [Unknown]
  - Application site rash [Not Recovered/Not Resolved]
  - Application site reaction [Not Recovered/Not Resolved]
  - Application site pruritus [Not Recovered/Not Resolved]
  - Application site erythema [Not Recovered/Not Resolved]
  - Therapeutic response decreased [Not Recovered/Not Resolved]
  - Wrong technique in drug usage process [Recovered/Resolved]
  - Product quality issue [Unknown]
